FAERS Safety Report 21296899 (Version 1)
Quarter: 2022Q3

REPORT INFORMATION
  Report Type: Spontaneous
  Country: US (occurrence: None)
  Receive Date: 20220902
  Receipt Date: 20220902
  Transmission Date: 20221027
  Serious: Yes (Life-Threatening, Hospitalization)
  Sender: FDA-Public Use
  Company Number: None

PATIENT
  Age: 75 Year
  Sex: Male

DRUGS (3)
  1. APIXABAN [Suspect]
     Active Substance: APIXABAN
     Indication: Atrial fibrillation
     Dosage: BID
     Dates: start: 20190509, end: 20220509
  2. APIXABAN [Suspect]
     Active Substance: APIXABAN
     Indication: Vascular operation
     Dates: start: 2017
  3. ASPIRIN [Suspect]
     Active Substance: ASPIRIN

REACTIONS (19)
  - Shock haemorrhagic [None]
  - Gastrointestinal haemorrhage [None]
  - Duodenal ulcer [None]
  - Syncope [None]
  - Haematochezia [None]
  - Sepsis [None]
  - Organ failure [None]
  - Pleural effusion [None]
  - Clostridium difficile infection [None]
  - Atrial fibrillation [None]
  - Blood thyroid stimulating hormone abnormal [None]
  - Haemoglobin decreased [None]
  - Erosive duodenitis [None]
  - Mucosal haemorrhage [None]
  - Mucosal erosion [None]
  - Ileal ulcer [None]
  - Gastritis erosive [None]
  - Platelet count decreased [None]
  - Anaemia [None]

NARRATIVE: CASE EVENT DATE: 20220512
